FAERS Safety Report 25381265 (Version 1)
Quarter: 2025Q2

REPORT INFORMATION
  Report Type: Spontaneous
  Country: CN (occurrence: CN)
  Receive Date: 20250530
  Receipt Date: 20250530
  Transmission Date: 20250717
  Serious: Yes (Hospitalization)
  Sender: EISAI
  Company Number: CN-Eisai-EC-2025-190126

PATIENT
  Age: 86 Year
  Sex: Male

DRUGS (4)
  1. DONEPEZIL [Suspect]
     Active Substance: DONEPEZIL
     Indication: Dementia Alzheimer^s type
  2. DONEPEZIL [Suspect]
     Active Substance: DONEPEZIL
  3. DONEPEZIL [Suspect]
     Active Substance: DONEPEZIL
  4. DONEPEZIL [Suspect]
     Active Substance: DONEPEZIL

REACTIONS (1)
  - Atrioventricular block complete [Recovered/Resolved]
